FAERS Safety Report 21310365 (Version 1)
Quarter: 2022Q3

REPORT INFORMATION
  Report Type: Spontaneous
  Country: US (occurrence: US)
  Receive Date: 20220909
  Receipt Date: 20220909
  Transmission Date: 20221026
  Serious: Yes (Other)
  Sender: FDA-Public Use
  Company Number: US-JNJFOC-20220862194

PATIENT
  Sex: Male

DRUGS (3)
  1. INVEGA SUSTENNA [Suspect]
     Active Substance: PALIPERIDONE PALMITATE
     Indication: Product used for unknown indication
     Route: 030
  2. INVEGA SUSTENNA [Suspect]
     Active Substance: PALIPERIDONE PALMITATE
  3. INVEGA SUSTENNA [Suspect]
     Active Substance: PALIPERIDONE PALMITATE

REACTIONS (7)
  - Multiple sclerosis [Unknown]
  - Rash [Unknown]
  - Mental disorder [Unknown]
  - Skin papilloma [Recovering/Resolving]
  - Exercise tolerance decreased [Unknown]
  - Drug hypersensitivity [Unknown]
  - Body height decreased [Unknown]

NARRATIVE: CASE EVENT DATE: 20200101
